FAERS Safety Report 6112343-4 (Version None)
Quarter: 2009Q1

REPORT INFORMATION
  Report Type: 
  Country: None (occurrence: None)
  Receive Date: 20090311
  Receipt Date: 20090311
  Transmission Date: 20090719
  Serious: Yes (Life-Threatening)
  Sender: FDA-Public Use
  Company Number: None

PATIENT
  Sex: Female
  Weight: 74.8435 kg

DRUGS (1)
  1. ACTONEL [Suspect]

REACTIONS (5)
  - DYSPEPSIA [None]
  - GINGIVAL BLEEDING [None]
  - PHARYNGEAL OEDEMA [None]
  - THROAT IRRITATION [None]
  - VOMITING [None]
